FAERS Safety Report 9285545 (Version 4)
Quarter: 2015Q3

REPORT INFORMATION
  Report Type: Report from Study
  Country: BR (occurrence: BR)
  Receive Date: 20130513
  Receipt Date: 20150805
  Transmission Date: 20151125
  Serious: Yes (Hospitalization, Other)
  Sender: FDA-Public Use
  Company Number: BR-ROCHE-701267

PATIENT
  Age: 35 Year
  Sex: Female
  Weight: 70 kg

DRUGS (30)
  1. PRESSAT [Concomitant]
     Active Substance: AMLODIPINE BESYLATE
     Indication: HYPERTENSION
     Route: 065
  2. PURAN [Concomitant]
     Active Substance: LEVOTHYROXINE SODIUM
     Route: 065
  3. CHLOROQUINE [Concomitant]
     Active Substance: CHLOROQUINE\CHLOROQUINE PHOSPHATE
     Dosage: DRUG: CHLOROQUINE DIPHOSPHATE
     Route: 065
  4. TRAMAL [Concomitant]
     Active Substance: TRAMADOL
  5. PREDNISONE. [Concomitant]
     Active Substance: PREDNISONE
     Dosage: 60 MG ALONG WITH RITUXIMAB
     Route: 065
  6. GABAPENTIN. [Concomitant]
     Active Substance: GABAPENTIN
     Route: 065
  7. SYNTHROID [Concomitant]
     Active Substance: LEVOTHYROXINE SODIUM
     Indication: THYROID DISORDER
     Route: 065
  8. FLUOXETINE [Concomitant]
     Active Substance: FLUOXETINE\FLUOXETINE HYDROCHLORIDE
  9. NPH INSULIN [Concomitant]
     Active Substance: INSULIN BEEF
     Route: 065
  10. OMEGA 3 [Concomitant]
     Active Substance: OMEGA-3 FATTY ACIDS
  11. CLOPINE [Concomitant]
     Active Substance: CLOZAPINE
  12. TOFRANIL [Concomitant]
     Active Substance: IMIPRAMINE HYDROCHLORIDE
  13. MABTHERA [Suspect]
     Active Substance: RITUXIMAB
     Dosage: DOSE: 1000 MG/ ML; FORM: INFUSION
     Route: 042
  14. ARADOIS [Concomitant]
     Active Substance: LOSARTAN POTASSIUM
     Indication: HYPERTENSION
     Route: 065
  15. OMEPRAZOLE. [Concomitant]
     Active Substance: OMEPRAZOLE
     Route: 065
  16. PANTOPRAZOLE [Concomitant]
     Active Substance: PANTOPRAZOLE SODIUM
  17. PANTOPRAZOLE [Concomitant]
     Active Substance: PANTOPRAZOLE SODIUM
  18. PURAN [Concomitant]
     Active Substance: LEVOTHYROXINE SODIUM
  19. TRAMADOL. [Concomitant]
     Active Substance: TRAMADOL
  20. VASTAREL [Concomitant]
     Active Substance: TRIMETAZIDINE DIHYDROCHLORIDE
  21. MABTHERA [Suspect]
     Active Substance: RITUXIMAB
     Indication: RHEUMATOID ARTHRITIS
     Dosage: DOSING AMOUNT: 1000 MG/ML; CO-INDICATION: LUPUS, INFUSIONS RECEIVED ON 30-3-09, 13-4-09,1-2-10ETC
     Route: 042
     Dates: start: 20090301, end: 20100301
  22. MABTHERA [Suspect]
     Active Substance: RITUXIMAB
     Route: 042
  23. RANITIDINE [Concomitant]
     Active Substance: RANITIDINE\RANITIDINE HYDROCHLORIDE
  24. ALPRAZOLAM. [Concomitant]
     Active Substance: ALPRAZOLAM
  25. CLOPINE [Concomitant]
     Active Substance: CLOZAPINE
  26. MABTHERA [Suspect]
     Active Substance: RITUXIMAB
     Dosage: DOSE: 1000 MG/ ML; FORM: INFUSION
     Route: 042
  27. INSULIN [Concomitant]
     Active Substance: INSULIN NOS
     Indication: BLOOD GLUCOSE INCREASED
  28. NEURONTIN (BRAZIL) [Concomitant]
     Indication: DIABETIC NEUROPATHY
     Route: 065
  29. TOFRANIL [Concomitant]
     Active Substance: IMIPRAMINE HYDROCHLORIDE
  30. VASTAREL [Concomitant]
     Active Substance: TRIMETAZIDINE DIHYDROCHLORIDE

REACTIONS (59)
  - Headache [Unknown]
  - Alopecia [Not Recovered/Not Resolved]
  - Feeding disorder [Not Recovered/Not Resolved]
  - Hyperchlorhydria [Not Recovered/Not Resolved]
  - Heart rate decreased [Recovered/Resolved]
  - Cardiac disorder [Recovered/Resolved]
  - Pruritus [Not Recovered/Not Resolved]
  - Dysgeusia [Not Recovered/Not Resolved]
  - Abasia [Recovered/Resolved]
  - Arthralgia [Unknown]
  - Vomiting [Not Recovered/Not Resolved]
  - Lung infection [Recovered/Resolved]
  - Pyrexia [Unknown]
  - Neck pain [Unknown]
  - Pharyngitis [Recovered/Resolved]
  - Nausea [Recovered/Resolved]
  - Hypersensitivity [Recovered/Resolved]
  - Aphasia [Recovered/Resolved]
  - Bacterial infection [Recovered/Resolved]
  - Gait disturbance [Recovered/Resolved]
  - Hypotension [Recovered/Resolved]
  - Decreased appetite [Not Recovered/Not Resolved]
  - Fatigue [Not Recovered/Not Resolved]
  - Chills [Unknown]
  - Disorientation [Unknown]
  - Malaise [Unknown]
  - Dizziness [Unknown]
  - Vomiting [Recovered/Resolved]
  - Rash erythematous [Not Recovered/Not Resolved]
  - Dry eye [Not Recovered/Not Resolved]
  - Dry skin [Not Recovered/Not Resolved]
  - Skin disorder [Not Recovered/Not Resolved]
  - Oropharyngeal pain [Unknown]
  - Blindness [Not Recovered/Not Resolved]
  - Dyspnoea [Unknown]
  - Thirst [Not Recovered/Not Resolved]
  - Tremor [Recovered/Resolved]
  - Dyspnoea [Recovered/Resolved]
  - Infarction [Recovered/Resolved]
  - Erythema [Unknown]
  - Dry mouth [Not Recovered/Not Resolved]
  - Localised infection [Unknown]
  - Pain [Recovered/Resolved]
  - Abasia [Unknown]
  - Pain [Not Recovered/Not Resolved]
  - Arrhythmia [Unknown]
  - Nervousness [Unknown]
  - Joint swelling [Recovered/Resolved]
  - Pallor [Unknown]
  - Hypoaesthesia [Recovering/Resolving]
  - Pain in extremity [Recovering/Resolving]
  - Pain in extremity [Unknown]
  - Immunodeficiency [Unknown]
  - Bone pain [Not Recovered/Not Resolved]
  - Vulvovaginal dryness [Not Recovered/Not Resolved]
  - Blood glucose abnormal [Recovered/Resolved]
  - Bone pain [Not Recovered/Not Resolved]
  - Renal injury [Not Recovered/Not Resolved]
  - Nausea [Not Recovered/Not Resolved]

NARRATIVE: CASE EVENT DATE: 200905
